FAERS Safety Report 6290245-0 (Version None)
Quarter: 2009Q3

REPORT INFORMATION
  Report Type: 
  Country: None (occurrence: None)
  Receive Date: 20090730
  Receipt Date: 20090126
  Transmission Date: 20100115
  Serious: No
  Sender: FDA-Public Use
  Company Number: US-BRISTOL-MYERS SQUIBB COMPANY-14483838

PATIENT
  Age: 89 Year
  Sex: Male
  Weight: 63 kg

DRUGS (6)
  1. COUMADIN [Suspect]
     Indication: CARDIAC DISORDER
  2. LIPITOR [Concomitant]
  3. CARVEDILOL [Concomitant]
  4. HYDROCHLOROTHIAZIDE [Concomitant]
  5. RAMIPRIL [Concomitant]
  6. LASIX [Concomitant]

REACTIONS (1)
  - PRURITUS [None]
